FAERS Safety Report 23810065 (Version 6)
Quarter: 2024Q4

REPORT INFORMATION
  Report Type: Spontaneous
  Country: US (occurrence: US)
  Receive Date: 20240502
  Receipt Date: 20241212
  Transmission Date: 20250114
  Serious: No
  Sender: PFIZER
  Company Number: US-PFIZER INC-PV202400056935

PATIENT
  Age: 72 Year
  Sex: Female

DRUGS (2)
  1. GENOTROPIN [Suspect]
     Active Substance: SOMATROPIN
     Indication: Hormone therapy
     Dosage: ^.3MG ALTERNATING .2MG EVERY OTHER DAY INJECTED^
  2. GENOTROPIN [Suspect]
     Active Substance: SOMATROPIN
     Dosage: ^.3MG ALTERNATING .2MG EVERY OTHER DAY INJECTED^

REACTIONS (1)
  - Device leakage [Unknown]
